FAERS Safety Report 6549807-5 (Version None)
Quarter: 2010Q1

REPORT INFORMATION
  Report Type: 
  Country: None (occurrence: None)
  Receive Date: 20100119
  Receipt Date: 20100104
  Transmission Date: 20100710
  Serious: Yes (Hospitalization)
  Sender: FDA-Public Use
  Company Number: 2010EU000025

PATIENT
  Age: 57 Year
  Sex: Male

DRUGS (8)
  1. TACROLIMUS [Suspect]
     Indication: LIVER TRANSPLANT
     Dosage: 10 MG /D, ORAL
     Route: 048
     Dates: start: 20090608
  2. INEXIUM (ESOMEPRAZOLE SODIUM) [Concomitant]
  3. VALGANCICLOVIR HCL [Concomitant]
  4. SOLUPRED (PREDNISOLONE SODIUM SULFOBENZOATE) [Concomitant]
  5. BACTRIM DS [Concomitant]
  6. TRAMADOL HCL [Concomitant]
  7. URSODIOL [Concomitant]
  8. FOLIC ACID [Concomitant]

REACTIONS (6)
  - BILE DUCT NECROSIS [None]
  - CHOLESTASIS [None]
  - DECREASED APPETITE [None]
  - DELIRIUM [None]
  - RENAL FAILURE [None]
  - WEIGHT DECREASED [None]
